FAERS Safety Report 6397749-0 (Version None)
Quarter: 2009Q4

REPORT INFORMATION
  Report Type: 
  Country: None (occurrence: None)
  Receive Date: 20091012
  Receipt Date: 20091006
  Transmission Date: 20100525
  Serious: Yes (Hospitalization, Other)
  Sender: FDA-Public Use
  Company Number: US-ELI_LILLY_AND_COMPANY-US200909001872

PATIENT
  Sex: Male

DRUGS (5)
  1. ALIMTA [Suspect]
     Indication: LUNG ADENOCARCINOMA
     Dosage: 500 MG/M2, UNK
     Dates: start: 20090722, end: 20090812
  2. CISPLATIN [Concomitant]
     Indication: LUNG ADENOCARCINOMA
     Dosage: 75 MG/M2, UNK
  3. VITAMIN B-12 [Concomitant]
  4. FOLIC ACID [Concomitant]
  5. CORTICOSTEROIDS [Concomitant]

REACTIONS (6)
  - ASTHENIA [None]
  - BLOOD BILIRUBIN INCREASED [None]
  - COOMBS TEST POSITIVE [None]
  - DEHYDRATION [None]
  - HAEMOLYTIC ANAEMIA [None]
  - HERPES OESOPHAGITIS [None]
